FAERS Safety Report 20808632 (Version 1)
Quarter: 2022Q2

REPORT INFORMATION
  Report Type: Spontaneous
  Country: US (occurrence: None)
  Receive Date: 20220509
  Receipt Date: 20220509
  Transmission Date: 20220721
  Serious: Yes (Hospitalization)
  Sender: FDA-Public Use
  Company Number: None

PATIENT
  Age: 25 Year
  Sex: Male
  Weight: 75 kg

DRUGS (1)
  1. DEXTROAMPHET SACCHARAT, AMPHET ASPARTATE, DEXTROAMPHET SULFATE AND AMP [Suspect]
     Active Substance: AMPHETAMINE ASPARTATE\AMPHETAMINE SULFATE\DEXTROAMPHETAMINE SACCHARATE\DEXTROAMPHETAMINE SULFATE
     Indication: Psychotic disorder
     Dosage: FREQUENCY : DAILY;?
     Route: 048

REACTIONS (6)
  - Agitation [None]
  - Anxiety [None]
  - Psychotic disorder [None]
  - Incorrect dose administered [None]
  - Aggression [None]
  - Delusion [None]

NARRATIVE: CASE EVENT DATE: 20211022
